FAERS Safety Report 9206089 (Version 2)
Quarter: 2013Q4

REPORT INFORMATION
  Report Type: Spontaneous
  Country: US (occurrence: US)
  Receive Date: 20130403
  Receipt Date: 20131024
  Transmission Date: 20140711
  Serious: Yes (Hospitalization, Other)
  Sender: FDA-Public Use
  Company Number: US-BAYER-2013-039957

PATIENT
  Age: 37 Year
  Sex: Female

DRUGS (8)
  1. YASMIN [Suspect]
  2. YAZ [Suspect]
  3. GIANVI [Suspect]
  4. PRILOSEC [Concomitant]
     Dosage: 20 MG, ONCE DAILY BEFORE BREAKFAST
     Route: 048
     Dates: start: 20101102
  5. MOTRIN [Concomitant]
     Dosage: 200 MG, EVERY 6 HOURS PRN
     Route: 048
     Dates: start: 20101102
  6. MORPHINE [Concomitant]
  7. ZOFRAN [Concomitant]
  8. DILAUDID [Concomitant]

REACTIONS (5)
  - Cholecystectomy [None]
  - Cholelithiasis [None]
  - Injury [None]
  - Pain [None]
  - Pain [None]
